FAERS Safety Report 15260193 (Version 2)
Quarter: 2018Q3

REPORT INFORMATION
  Report Type: Spontaneous
  Country: US (occurrence: US)
  Receive Date: 20180809
  Receipt Date: 20180813
  Transmission Date: 20181010
  Serious: No
  Sender: FDA-Public Use
  Company Number: US-PFIZER INC-2018317078

PATIENT
  Age: 87 Year
  Sex: Female
  Weight: 50.8 kg

DRUGS (4)
  1. ADVIL [Suspect]
     Active Substance: IBUPROFEN
     Indication: PAIN
     Dosage: TWO PILLS AT 1:30 PM AND ONE PILL AT 6:30 PM
     Dates: start: 20180803, end: 20180803
  2. ADVIL [Suspect]
     Active Substance: IBUPROFEN
     Dosage: TOOK ONE PILL IN THE MORNING AT 8:00AM AND ONE PILL IN THE AFTERNOON AT 2:00 PM
     Dates: start: 20180806, end: 20180806
  3. ADVIL [Suspect]
     Active Substance: IBUPROFEN
     Dosage: UNK UNK, 3X/DAY
     Dates: start: 20180804, end: 20180804
  4. ADVIL [Suspect]
     Active Substance: IBUPROFEN
     Dosage: 1 PILL AT 8:30 AM, ONE PILL AT 2:00 PM AND TWO PILLS AT 7:30 PM
     Dates: start: 20180805, end: 20180805

REACTIONS (1)
  - Dizziness [Recovering/Resolving]

NARRATIVE: CASE EVENT DATE: 20180803
